FAERS Safety Report 8910062 (Version 3)
Quarter: 2013Q1

REPORT INFORMATION
  Report Type: Spontaneous
  Country: US (occurrence: US)
  Receive Date: 20121115
  Receipt Date: 20130219
  Transmission Date: 20140127
  Serious: No
  Sender: FDA-Public Use
  Company Number: US-009507513-1211USA004775

PATIENT
  Sex: Female
  Weight: 69.84 kg

DRUGS (2)
  1. IMPLANON [Suspect]
     Indication: CONTRACEPTION
     Dosage: ETONOGESTREL IMPLANT
     Route: 059
     Dates: start: 20121026, end: 20121109
  2. VITAMINS (UNSPECIFIED) [Concomitant]

REACTIONS (1)
  - Unintended pregnancy [Unknown]
